FAERS Safety Report 17586766 (Version 3)
Quarter: 2020Q2

REPORT INFORMATION
  Report Type: Spontaneous
  Country: US (occurrence: US)
  Receive Date: 20200326
  Receipt Date: 20200414
  Transmission Date: 20200713
  Serious: Yes (Other)
  Sender: FDA-Public Use
  Company Number: US-JNJFOC-20200329712

PATIENT
  Age: 8 Year
  Sex: Male

DRUGS (15)
  1. CHILDRENS TYLENOL COLD PLUS COUGH PLUS RUNNY NOSE [Suspect]
     Active Substance: ACETAMINOPHEN\CHLORPHENIRAMINE MALEATE\DEXTROMETHORPHAN HYDROBROMIDE
     Indication: RHINORRHOEA
  2. CHILDRENS BENADRYL ALLERGY [Suspect]
     Active Substance: DIPHENHYDRAMINE HYDROCHLORIDE
     Indication: OROPHARYNGEAL PAIN
  3. CHILDRENS BENADRYL ALLERGY [Suspect]
     Active Substance: DIPHENHYDRAMINE HYDROCHLORIDE
     Indication: DYSPHONIA
  4. CHILDRENS MOTRIN [Suspect]
     Active Substance: IBUPROFEN
     Indication: OROPHARYNGEAL PAIN
  5. CHILDRENS BENADRYL ALLERGY [Suspect]
     Active Substance: DIPHENHYDRAMINE HYDROCHLORIDE
     Indication: PYREXIA
     Dosage: 12.5MG/5ML UNKNOWN
     Route: 048
     Dates: start: 202003
  6. CHILDRENS TYLENOL COLD PLUS COUGH PLUS RUNNY NOSE [Suspect]
     Active Substance: ACETAMINOPHEN\CHLORPHENIRAMINE MALEATE\DEXTROMETHORPHAN HYDROBROMIDE
     Indication: COUGH
  7. CHILDRENS MOTRIN [Suspect]
     Active Substance: IBUPROFEN
     Indication: RHINORRHOEA
  8. CHILDRENS TYLENOL COLD PLUS COUGH PLUS RUNNY NOSE [Suspect]
     Active Substance: ACETAMINOPHEN\CHLORPHENIRAMINE MALEATE\DEXTROMETHORPHAN HYDROBROMIDE
     Indication: DYSPHONIA
  9. CHILDRENS BENADRYL ALLERGY [Suspect]
     Active Substance: DIPHENHYDRAMINE HYDROCHLORIDE
     Indication: COUGH
  10. CHILDRENS MOTRIN [Suspect]
     Active Substance: IBUPROFEN
     Indication: PYREXIA
     Route: 048
     Dates: start: 202003
  11. CHILDRENS MOTRIN [Suspect]
     Active Substance: IBUPROFEN
     Indication: COUGH
  12. CHILDRENS TYLENOL COLD PLUS COUGH PLUS RUNNY NOSE [Suspect]
     Active Substance: ACETAMINOPHEN\CHLORPHENIRAMINE MALEATE\DEXTROMETHORPHAN HYDROBROMIDE
     Indication: PYREXIA
     Route: 048
     Dates: start: 202003
  13. CHILDRENS TYLENOL COLD PLUS COUGH PLUS RUNNY NOSE [Suspect]
     Active Substance: ACETAMINOPHEN\CHLORPHENIRAMINE MALEATE\DEXTROMETHORPHAN HYDROBROMIDE
     Indication: OROPHARYNGEAL PAIN
  14. CHILDRENS BENADRYL ALLERGY [Suspect]
     Active Substance: DIPHENHYDRAMINE HYDROCHLORIDE
     Indication: RHINORRHOEA
  15. CHILDRENS MOTRIN [Suspect]
     Active Substance: IBUPROFEN
     Indication: DYSPHONIA

REACTIONS (3)
  - Hypersomnia [Recovered/Resolved]
  - Decreased appetite [Recovered/Resolved]
  - Urinary retention [Not Recovered/Not Resolved]

NARRATIVE: CASE EVENT DATE: 202003
